FAERS Safety Report 5865692-9 (Version None)
Quarter: 2008Q3

REPORT INFORMATION
  Report Type: 
  Country: None (occurrence: None)
  Receive Date: 20080829
  Receipt Date: 20080819
  Transmission Date: 20090109
  Serious: Yes (Other)
  Sender: FDA-Public Use
  Company Number: BR-ROCHE-582302

PATIENT
  Age: 59 Year
  Sex: Female
  Weight: 70 kg

DRUGS (5)
  1. RIVOTRIL [Suspect]
     Indication: MIGRAINE
     Dosage: OCCASIONALLY. OTHER INDICATION REPORTED AS HYPOTHYROIDISM AND FAINT.
     Route: 048
     Dates: start: 20001201
  2. PURAN T4 [Concomitant]
     Indication: THYROID DISORDER
     Dosage: STRENGTH: 75 OR 55 OR 100 MCG
     Route: 048
  3. ELAMAX [Concomitant]
     Indication: HORMONE REPLACEMENT THERAPY
     Route: 048
  4. GINKGO BILOBA [Concomitant]
     Dosage: DRUG REPORTED AS GINKO BILOBA
  5. FLUOXETINE [Concomitant]

REACTIONS (4)
  - BLOOD CHOLESTEROL INCREASED [None]
  - BLOOD TRIGLYCERIDES INCREASED [None]
  - ILL-DEFINED DISORDER [None]
  - THYROID DISORDER [None]
